FAERS Safety Report 17507603 (Version 2)
Quarter: 2020Q1

REPORT INFORMATION
  Report Type: Spontaneous
  Country: US (occurrence: US)
  Receive Date: 20200306
  Receipt Date: 20200327
  Transmission Date: 20200409
  Serious: Yes (Other)
  Sender: FDA-Public Use
  Company Number: US-ASTRAZENECA-2020SE23469

PATIENT
  Sex: Female
  Weight: 79.4 kg

DRUGS (8)
  1. ALBUTEROL. [Concomitant]
     Active Substance: ALBUTEROL
  2. NASAL SPRAYS [Concomitant]
  3. OXYBUTININ [Concomitant]
     Active Substance: OXYBUTYNIN
     Indication: URINE OUTPUT INCREASED
  4. ALLERGY PILLS [Concomitant]
     Active Substance: UNSPECIFIED INGREDIENT
  5. MULTIVITAMIN [Concomitant]
     Active Substance: VITAMINS
  6. FISH OIL [Concomitant]
     Active Substance: FISH OIL
  7. DULERA [Concomitant]
     Active Substance: FORMOTEROL FUMARATE DIHYDRATE\MOMETASONE FUROATE
  8. FASENRA [Suspect]
     Active Substance: BENRALIZUMAB
     Indication: ASTHMA
     Route: 058
     Dates: start: 20200131

REACTIONS (1)
  - Herpes zoster [Unknown]
